FAERS Safety Report 8041460-7 (Version None)
Quarter: 2012Q1

REPORT INFORMATION
  Report Type: 
  Country: None (occurrence: None)
  Receive Date: 20120112
  Receipt Date: 20120106
  Transmission Date: 20120608
  Serious: Yes (Life-Threatening)
  Sender: FDA-Public Use
  Company Number: DE-PFIZER INC-2012007287

PATIENT
  Age: 47 Year
  Sex: Female

DRUGS (12)
  1. FERROUS SULFATE TAB [Concomitant]
     Dosage: UNK
     Dates: start: 20081201
  2. TRIMIPRAMINE MALEATE [Suspect]
     Indication: DEPRESSION
     Dosage: 25 MG, 1X/DAY
     Route: 048
  3. LEVODOPA [Concomitant]
     Dosage: UNK
     Dates: start: 20081201
  4. BEZAFIBRATE [Concomitant]
     Dosage: UNK
     Dates: start: 20081201
  5. MARCUMAR [Concomitant]
     Dosage: UNK
     Dates: start: 20081201
  6. DANTROLENE SODIUM [Suspect]
     Dosage: 25 MG, 3X/DAY
     Route: 048
  7. SAB SIMPLEX [Concomitant]
     Dosage: UNK
     Dates: start: 20081201
  8. PROPAFENONE HCL [Concomitant]
     Dosage: UNK
     Dates: start: 20081201
  9. AMIODARONE HCL [Suspect]
     Indication: TACHYARRHYTHMIA
     Dosage: 200 MG, 1X/DAY
     Route: 048
     Dates: start: 20090301
  10. BACLOFEN [Suspect]
     Indication: MUSCLE SPASTICITY
     Dosage: 25 MG, 2X/DAY
     Dates: start: 20081201
  11. BACLOFEN [Suspect]
     Dosage: 25 MG, 2X/DAY
     Route: 048
  12. DANTROLENE SODIUM [Suspect]
     Indication: MUSCLE SPASTICITY
     Dosage: 50 MG, 4X/DAY
     Dates: start: 20081201

REACTIONS (1)
  - HYPONATRAEMIA [None]
